FAERS Safety Report 4448132-6 (Version None)
Quarter: 2004Q3

REPORT INFORMATION
  Report Type: 
  Country: None (occurrence: None)
  Receive Date: 20040812
  Receipt Date: 20040621
  Transmission Date: 20050211
  Serious: No
  Sender: FDA-Public Use
  Company Number: USA040670699

PATIENT
  Sex: Male

DRUGS (1)
  1. CIALIS [Suspect]
     Indication: ERECTILE DYSFUNCTION
     Dosage: 40 MG
     Dates: start: 20040601

REACTIONS (3)
  - DRUG INEFFECTIVE [None]
  - HOT FLUSH [None]
  - INTENTIONAL OVERDOSE [None]
